FAERS Safety Report 7551690-6 (Version None)
Quarter: 2011Q2

REPORT INFORMATION
  Report Type: 
  Country: None (occurrence: None)
  Receive Date: 20110616
  Receipt Date: 20110607
  Transmission Date: 20111010
  Serious: Yes (Other)
  Sender: FDA-Public Use
  Company Number: SG-ASTRAZENECA-2011SE32512

PATIENT
  Age: 70 Year
  Sex: Male

DRUGS (5)
  1. NORVASC [Concomitant]
  2. TELMISARTAN [Concomitant]
  3. ASPIRIN [Concomitant]
  4. TERAZOSIN HCL [Concomitant]
  5. CRESTOR [Suspect]
     Indication: HYPERCHOLESTEROLAEMIA
     Route: 048
     Dates: start: 20110101

REACTIONS (2)
  - SLEEP DISORDER DUE TO GENERAL MEDICAL CONDITION, INSOMNIA TYPE [None]
  - PRURITUS [None]
